FAERS Safety Report 20058526 (Version 1)
Quarter: 2021Q4

REPORT INFORMATION
  Report Type: Spontaneous
  Country: US (occurrence: None)
  Receive Date: 20211110
  Receipt Date: 20211110
  Transmission Date: 20220303
  Serious: No
  Sender: FDA-Public Use
  Company Number: None

PATIENT
  Sex: Female
  Weight: 117.62 kg

DRUGS (36)
  1. CAPECITABINE [Suspect]
     Active Substance: CAPECITABINE
     Indication: Breast cancer female
     Dosage: 2500 MG BID ORAL?
     Route: 048
  2. ACETAMINOPHEN [Concomitant]
     Active Substance: ACETAMINOPHEN
  3. BUBITAL [Concomitant]
  4. ANCEF [Concomitant]
     Active Substance: CEFAZOLIN SODIUM
  5. CELEXA [Concomitant]
     Active Substance: CITALOPRAM HYDROBROMIDE
  6. CETIRIZINE [Concomitant]
     Active Substance: CETIRIZINE HYDROCHLORIDE
  7. CLONAZEPAM [Concomitant]
     Active Substance: CLONAZEPAM
  8. DEXAMETHASONE [Concomitant]
     Active Substance: DEXAMETHASONE
  9. DIPHENHYDRAMINE [Concomitant]
     Active Substance: DIPHENHYDRAMINE
  10. EPHEDRINE [Concomitant]
     Active Substance: EPHEDRINE
  11. FENTANYL [Concomitant]
     Active Substance: FENTANYL
  12. FLONASE [Concomitant]
     Active Substance: FLUTICASONE PROPIONATE
  13. GABAPENTIN [Concomitant]
     Active Substance: GABAPENTIN
  14. HEPARIN [Concomitant]
     Active Substance: HEPARIN SODIUM
  15. NORCO [Concomitant]
     Active Substance: ACETAMINOPHEN\HYDROCODONE BITARTRATE
  16. HYDROMORPHONE [Concomitant]
     Active Substance: HYDROMORPHONE
  17. IBUPROFEN [Concomitant]
     Active Substance: IBUPROFEN
  18. KETAMINE [Concomitant]
     Active Substance: KETAMINE
  19. KETOROLAC [Concomitant]
     Active Substance: KETOROLAC TROMETHAMINE
  20. LIDOCAINE [Concomitant]
     Active Substance: LIDOCAINE
  21. MAGNESIUM [Concomitant]
     Active Substance: MAGNESIUM
  22. MEPERIDINE [Concomitant]
     Active Substance: MEPERIDINE
  23. MORPHINE [Concomitant]
     Active Substance: MORPHINE
  24. NALOXONE [Concomitant]
     Active Substance: NALOXONE
  25. ONDANSETRON [Concomitant]
     Active Substance: ONDANSETRON
  26. ORPHENADRINE [Concomitant]
     Active Substance: ORPHENADRINE
  27. OXYCODONE [Concomitant]
     Active Substance: OXYCODONE
  28. PEPCID [Concomitant]
     Active Substance: FAMOTIDINE
  29. PROMETHAZINE [Concomitant]
     Active Substance: PROMETHAZINE HYDROCHLORIDE
  30. PROPOFOL [Concomitant]
     Active Substance: PROPOFOL
  31. ROCURONIUM [Concomitant]
     Active Substance: ROCURONIUM BROMIDE
  32. SIMETHICONE (DIMETHICONE) [Concomitant]
     Active Substance: DIMETHICONE
  33. SODIUM CHLORIDE [Concomitant]
     Active Substance: SODIUM CHLORIDE
  34. SUGAMMAQDEX [Concomitant]
  35. HERBALS\TURMERIC [Concomitant]
     Active Substance: HERBALS\TURMERIC
  36. XYZAL [Concomitant]
     Active Substance: LEVOCETIRIZINE DIHYDROCHLORIDE

REACTIONS (1)
  - Abdominal pain upper [None]
